FAERS Safety Report 4901776-7 (Version None)
Quarter: 2006Q1

REPORT INFORMATION
  Report Type: 
  Country: None (occurrence: None)
  Receive Date: 20060203
  Receipt Date: 20060203
  Transmission Date: 20060701
  Serious: Yes (Hospitalization, Disabling)
  Sender: FDA-Public Use
  Company Number: None

PATIENT
  Age: 46 Year
  Sex: Male
  Weight: 71.6683 kg

DRUGS (1)
  1. ATORVASTATIN   80 MG [Suspect]
     Indication: HYPERLIPIDAEMIA
     Dosage: 40 MG  QD  PO
     Route: 048
     Dates: start: 20051109, end: 20051209

REACTIONS (2)
  - BLOOD CREATINE PHOSPHOKINASE INCREASED [None]
  - CHEST PAIN [None]
